FAERS Safety Report 4966632-7 (Version None)
Quarter: 2006Q1

REPORT INFORMATION
  Report Type: 
  Country: None (occurrence: None)
  Receive Date: 20060201
  Receipt Date: 20051212
  Transmission Date: 20060701
  Serious: No
  Sender: FDA-Public Use
  Company Number: 2005PV005768

PATIENT
  Age: 48 Year
  Sex: Male
  Weight: 106.5953 kg

DRUGS (3)
  1. BYETTA [Suspect]
     Indication: DIABETES MELLITUS NON-INSULIN-DEPENDENT
     Dosage: 5 MCG; BID; SC
     Route: 058
     Dates: start: 20051128
  2. AVANDAMET [Concomitant]
  3. PREVACID [Concomitant]

REACTIONS (6)
  - DIARRHOEA [None]
  - ERECTILE DYSFUNCTION [None]
  - FEELING JITTERY [None]
  - HYPERCHLORHYDRIA [None]
  - NAUSEA [None]
  - WEIGHT DECREASED [None]
